FAERS Safety Report 22063619 (Version 1)
Quarter: 2023Q1

REPORT INFORMATION
  Report Type: Report from Study
  Country: CN (occurrence: None)
  Receive Date: 20230306
  Receipt Date: 20230306
  Transmission Date: 20230418
  Serious: Yes (Other)
  Sender: FDA-Public Use
  Company Number: CN-ROCHE-3286462

PATIENT
  Age: 73 Year
  Sex: Male
  Weight: 66 kg

DRUGS (44)
  1. ATEZOLIZUMAB [Suspect]
     Active Substance: ATEZOLIZUMAB
     Indication: Non-small cell lung cancer metastatic
     Dosage: ON 06/DEC/2022, RECEIVED MOST RECENT DOSE OF BLINDED ATEZOLIZUMAB PRIOR TO AE (ADVERSE EVENT) AND SA
     Route: 041
     Dates: start: 20210607
  2. BEVACIZUMAB [Suspect]
     Active Substance: BEVACIZUMAB
     Indication: Non-small cell lung cancer metastatic
     Dosage: ON 06/DEC/2022, RECEIVED MOST RECENT DOSE 945 MG OF BEVACIZUMAB PRIOR TO AE (ADVERSE EVENT) AND SAE
     Route: 042
     Dates: start: 20210607
  3. CARBOPLATIN [Suspect]
     Active Substance: CARBOPLATIN
     Indication: Non-small cell lung cancer metastatic
     Dosage: ON 11/AUG/2022, RECEIVED MOST RECENT DOSE 360 MG OF CARBOPLATIN PRIOR TO AE AND SAE
     Route: 042
     Dates: start: 20210607
  4. PEMETREXED [Suspect]
     Active Substance: PEMETREXED
     Indication: Non-small cell lung cancer metastatic
     Dosage: ON 06/DEC/2022, RECEIVED MOST RECENT DOSE 830 MG OF PEMETREXED PRIOR TO AE AND  SAE
     Route: 042
     Dates: start: 20210607
  5. CELECOXIB [Concomitant]
     Active Substance: CELECOXIB
     Indication: Analgesic therapy
     Dates: start: 20210630
  6. CALCIUM CARBONATE AND VITAMIN D3 TABLETS (II) [Concomitant]
     Dosage: GIVEN FOR PROPHYLAXIS IS YES ONGOING: YES
     Dates: start: 20210630, end: 20230205
  7. CALCIUM CARBONATE AND VITAMIN D3 TABLETS (II) [Concomitant]
     Dates: start: 20230214
  8. LEUCOGEN TABLETS [Concomitant]
     Dosage: GIVEN FOR PROPHYLAXIS IS YES ;ONGOING: YES
     Dates: start: 20211021
  9. LEUCOGEN TABLETS [Concomitant]
     Dosage: GIVEN FOR PROPHYLAXIS IS YES ;ONGOING: YES
     Dates: start: 20211222, end: 20230205
  10. AMLODIPINE BESYLATE [Concomitant]
     Active Substance: AMLODIPINE BESYLATE
     Dates: start: 20220303, end: 20230205
  11. AMLODIPINE BESYLATE [Concomitant]
     Active Substance: AMLODIPINE BESYLATE
     Dates: start: 20230214
  12. ESOMEPRAZOLE MAGNESIUM [Concomitant]
     Active Substance: ESOMEPRAZOLE MAGNESIUM
     Dosage: GIVEN FOR PROPHYLAXIS IS YES ;ONGOING: YES
     Dates: start: 20220621
  13. MEGESTROL ACETATE [Concomitant]
     Active Substance: MEGESTROL ACETATE
     Dosage: GIVEN FOR PROPHYLAXIS IS YES ;ONGOING: YES, MEGESTROL ACETATE DISPERSIBLE TABLETS
     Dates: start: 20221206
  14. LACTULOSE [Concomitant]
     Active Substance: LACTULOSE
     Dosage: GIVEN FOR PROPHYLAXIS IS YES ;ONGOING: YES
     Dates: start: 20221206
  15. LACTULOSE [Concomitant]
     Active Substance: LACTULOSE
     Dates: start: 20230208, end: 20230212
  16. SUCRALFATE [Concomitant]
     Active Substance: SUCRALFATE
     Dates: start: 20221206
  17. ERYTHROPOIETIN [Concomitant]
     Active Substance: ERYTHROPOIETIN
     Indication: Platelet count increased
     Dates: start: 20230208
  18. ERYTHROPOIETIN [Concomitant]
     Active Substance: ERYTHROPOIETIN
     Dates: start: 20230117, end: 20230124
  19. FERRIC POLYSACCHARIDE COMPLEX [Concomitant]
     Active Substance: FERRIC POLYSACCHARIDE COMPLEX
     Indication: Anaemia
     Dates: start: 20230117, end: 20230204
  20. RIVAROXABAN [Concomitant]
     Active Substance: RIVAROXABAN
     Dates: start: 20230117, end: 20230205
  21. AMINOPHYLLINE\CHLORPHENIRAMINE MALEATE\METHOXYPHENAMINE HYDROCHLORIDE\ [Concomitant]
     Active Substance: AMINOPHYLLINE\CHLORPHENIRAMINE MALEATE\METHOXYPHENAMINE HYDROCHLORIDE\NOSCAPINE
     Indication: Cough
     Dosage: GIVEN FOR PROPHYLAXIS IS YES ;ONGOING: YES
     Dates: start: 20230117, end: 20230205
  22. DEXAMETHASONE SODIUM PHOSPHATE [Concomitant]
     Active Substance: DEXAMETHASONE SODIUM PHOSPHATE
     Dosage: GIVEN FOR PROPHYLAXIS IS YES ;ONGOING: NO
     Route: 042
     Dates: start: 20230208, end: 20230209
  23. DEXAMETHASONE SODIUM PHOSPHATE [Concomitant]
     Active Substance: DEXAMETHASONE SODIUM PHOSPHATE
     Dosage: GIVEN FOR PROPHYLAXIS IS YES ;ONGOING: NO
     Route: 042
     Dates: start: 20230212, end: 20230212
  24. RECOMBINANT HUMAN THROMBOPOIETIN INJECTION (CHO CELL) (UNK INGREDIENTS [Concomitant]
     Dates: start: 20230208
  25. RECOMBINANT HUMAN THROMBOPOIETIN INJECTION (CHO CELL) (UNK INGREDIENTS [Concomitant]
     Dates: start: 20230208, end: 20230213
  26. LIDOCAINE HYDROCHLORIDE [Concomitant]
     Active Substance: LIDOCAINE HYDROCHLORIDE
     Indication: Local anaesthesia
     Dates: start: 20230208, end: 20230208
  27. CEFOTAXIME SODIUM [Concomitant]
     Active Substance: CEFOTAXIME SODIUM
     Dates: start: 20230127, end: 20230130
  28. PIPERACILLIN SODIUM\TAZOBACTAM SODIUM [Concomitant]
     Active Substance: PIPERACILLIN SODIUM\TAZOBACTAM SODIUM
     Dates: start: 20230130, end: 20230204
  29. PIPERACILLIN SODIUM\TAZOBACTAM SODIUM [Concomitant]
     Active Substance: PIPERACILLIN SODIUM\TAZOBACTAM SODIUM
     Dates: start: 20230208, end: 20230213
  30. LEVOFLOXACIN [Concomitant]
     Active Substance: LEVOFLOXACIN
     Dates: start: 20230206, end: 20230208
  31. DOXOFYLLINE [Concomitant]
     Active Substance: DOXOFYLLINE
     Dates: start: 20230130, end: 20230204
  32. DOXOFYLLINE [Concomitant]
     Active Substance: DOXOFYLLINE
     Dates: start: 20230205, end: 20230205
  33. BROMHEXINE [Concomitant]
     Active Substance: BROMHEXINE
     Dates: start: 20230130, end: 20230204
  34. BUDESONIDE [Concomitant]
     Active Substance: BUDESONIDE
     Dates: start: 20230130, end: 20230204
  35. AMBROXOL HYDROCHLORIDE [Concomitant]
     Active Substance: AMBROXOL HYDROCHLORIDE
     Dates: start: 20230205, end: 20230206
  36. ERTAPENEM [Concomitant]
     Active Substance: ERTAPENEM
     Dates: start: 20230205, end: 20230207
  37. HEPARIN SODIUM [Concomitant]
     Active Substance: HEPARIN SODIUM
     Dates: start: 20230205, end: 20230207
  38. PANTOPRAZOLE SODIUM [Concomitant]
     Active Substance: PANTOPRAZOLE SODIUM
     Dates: start: 20230206, end: 20230207
  39. PANTOPRAZOLE SODIUM [Concomitant]
     Active Substance: PANTOPRAZOLE SODIUM
     Dates: start: 20230209, end: 20230213
  40. LEVOFLOXACIN HYDROCHLORIDE [Concomitant]
     Active Substance: LEVOFLOXACIN HYDROCHLORIDE
     Dates: start: 20230130, end: 20230204
  41. DOPTELET [Concomitant]
     Active Substance: AVATROMBOPAG MALEATE
     Dates: start: 20230209, end: 20230212
  42. DOPTELET [Concomitant]
     Active Substance: AVATROMBOPAG MALEATE
     Dates: start: 20210630, end: 20230205
  43. DOPTELET [Concomitant]
     Active Substance: AVATROMBOPAG MALEATE
     Dates: start: 20230214
  44. FOLIC ACID [Concomitant]
     Active Substance: FOLIC ACID
     Dates: start: 20210520, end: 20230205

REACTIONS (1)
  - Autoimmune haemolytic anaemia [Not Recovered/Not Resolved]

NARRATIVE: CASE EVENT DATE: 20230208
